FAERS Safety Report 13764396 (Version 1)
Quarter: 2017Q3

REPORT INFORMATION
  Report Type: Spontaneous
  Country: AR (occurrence: AR)
  Receive Date: 20170718
  Receipt Date: 20170718
  Transmission Date: 20171127
  Serious: Yes (Other)
  Sender: FDA-Public Use
  Company Number: AR-TEVA-788995USA

PATIENT
  Sex: Male
  Weight: 95 kg

DRUGS (1)
  1. AMRIX [Suspect]
     Active Substance: CYCLOBENZAPRINE HYDROCHLORIDE
     Indication: MUSCLE CONTRACTURE
     Dosage: 15 MILLIGRAM DAILY;
     Route: 048
     Dates: start: 20170621, end: 20170624

REACTIONS (2)
  - Myalgia [Recovered/Resolved]
  - Arthralgia [Recovered/Resolved]
